FAERS Safety Report 16052985 (Version 4)
Quarter: 2019Q1

REPORT INFORMATION
  Report Type: Report from Study
  Country: PL (occurrence: PL)
  Receive Date: 20190308
  Receipt Date: 20190322
  Transmission Date: 20190418
  Serious: Yes (Life-Threatening)
  Sender: FDA-Public Use
  Company Number: PL-PFIZER INC-2019102608

PATIENT
  Age: 68 Year
  Sex: Male
  Weight: 71 kg

DRUGS (8)
  1. EXACYL [Concomitant]
     Active Substance: TRANEXAMIC ACID
     Indication: THROMBOCYTOPENIA
     Dosage: 1 G, FREQUENCY: 3X
     Route: 048
     Dates: start: 20190222
  2. ACYCLOVIR [ACICLOVIR] [Concomitant]
     Active Substance: ACYCLOVIR
     Indication: PROPHYLAXIS
     Dosage: 800 MG, FREQUENCY; 2X
     Route: 048
     Dates: start: 20190212
  3. GLASDEGIB [Suspect]
     Active Substance: GLASDEGIB
     Indication: ACUTE MYELOID LEUKAEMIA
     Dosage: 100 MG, ONCE DAILY, CONTINOUS
     Route: 048
     Dates: start: 20190212, end: 20190305
  4. FLUCONAZOLE. [Concomitant]
     Active Substance: FLUCONAZOLE
     Indication: PROPHYLAXIS
     Dosage: 100 MG, FREQUENCY; 1X
     Route: 048
     Dates: start: 20190212
  5. CIPRINOL [Concomitant]
     Active Substance: CIPROFLOXACIN
     Indication: PROPHYLAXIS
     Dosage: 500 MG, FREQUENCY: 2X
     Route: 048
     Dates: start: 20190212
  6. KALIPOZ [Concomitant]
     Active Substance: POTASSIUM CHLORIDE
     Indication: PROPHYLAXIS
     Dosage: 750 MG,  FREQUENCY: 3X
     Route: 048
     Dates: start: 20190222
  7. AZACITIDINE. [Suspect]
     Active Substance: AZACITIDINE
     Indication: ACUTE MYELOID LEUKAEMIA
     Dosage: 141 MG, DAILY, FOR 7 DAYS
     Route: 058
     Dates: start: 20190212, end: 20190218
  8. OPTILYTE [Concomitant]
     Active Substance: CALCIUM CHLORIDE\MAGNESIUM CHLORIDE\POTASSIUM CHLORIDE\SODIUM ACETATE\SODIUM CHLORIDE\SODIUM CITRATE
     Indication: PROPHYLAXIS
     Dosage: 500 ML,  FREQUENCY: 2X
     Route: 042
     Dates: start: 20190212

REACTIONS (1)
  - Urinary tract infection [Recovered/Resolved]

NARRATIVE: CASE EVENT DATE: 20190304
